FAERS Safety Report 9638616 (Version 1)
Quarter: 2013Q4

REPORT INFORMATION
  Report Type: Spontaneous
  Country: US (occurrence: US)
  Receive Date: 20131022
  Receipt Date: 20131022
  Transmission Date: 20140711
  Serious: No
  Sender: FDA-Public Use
  Company Number: US-BRISTOL-MYERS SQUIBB COMPANY-19435650

PATIENT
  Age: 55 Year
  Sex: Male
  Weight: 104.31 kg

DRUGS (2)
  1. ELIQUIS [Suspect]
     Dosage: LAST NIGHT AND THIS MORNING
     Dates: start: 2013
  2. SIMVASTATIN [Concomitant]

REACTIONS (1)
  - Drug dose omission [Unknown]
